FAERS Safety Report 7005429-3 (Version None)
Quarter: 2010Q3

REPORT INFORMATION
  Report Type: 
  Country: None (occurrence: None)
  Receive Date: 20100921
  Receipt Date: 20100915
  Transmission Date: 20110219
  Serious: Yes (Death)
  Sender: FDA-Public Use
  Company Number: JP-ROCHE-632871

PATIENT
  Sex: Female

DRUGS (16)
  1. TOCILIZUMAB [Suspect]
     Indication: RHEUMATOID ARTHRITIS
     Route: 041
     Dates: start: 20090323, end: 20090323
  2. TOCILIZUMAB [Suspect]
     Route: 041
     Dates: start: 20090417, end: 20090417
  3. PREDONINE [Suspect]
     Indication: PRODUCT USED FOR UNKNOWN INDICATION
     Route: 048
     Dates: end: 20090315
  4. PREDONINE [Suspect]
     Route: 048
     Dates: start: 20090316, end: 20090427
  5. ALOSITOL [Concomitant]
     Route: 048
     Dates: end: 20090427
  6. LASIX [Concomitant]
     Dosage: NOTE: 40 MG IN MORNING AND 20 MG IN DAYTIME
     Route: 048
     Dates: end: 20090427
  7. ARTIST [Concomitant]
     Route: 048
     Dates: end: 20090427
  8. LAXOBERON [Concomitant]
     Dosage: NOTE: TAKEN AS NEEDED
     Route: 048
  9. MAGLAX [Concomitant]
     Route: 048
     Dates: end: 20090427
  10. AMLODIPINE BESYLATE [Concomitant]
     Dosage: DRUG: AMLODIN OD
     Route: 048
     Dates: end: 20090427
  11. PENTASA [Concomitant]
     Route: 048
     Dates: end: 20090427
  12. KREMEZIN [Concomitant]
     Dosage: FORM: FINE GRANULES
     Route: 048
     Dates: end: 20090427
  13. GENTAMICIN SULFATE [Concomitant]
     Dosage: DRUG: ELTACIN
     Route: 061
  14. TAKEPRON [Concomitant]
     Route: 048
     Dates: end: 20090427
  15. FERROMIA [Concomitant]
     Route: 048
     Dates: end: 20090427
  16. ADALAT [Concomitant]
     Route: 048
     Dates: end: 20090427

REACTIONS (3)
  - DIVERTICULITIS [None]
  - PERITONITIS [None]
  - SHOCK [None]
